FAERS Safety Report 8170694-6 (Version None)
Quarter: 2012Q1

REPORT INFORMATION
  Report Type: 
  Country: None (occurrence: None)
  Receive Date: 20120228
  Receipt Date: 20120217
  Transmission Date: 20120608
  Serious: No
  Sender: FDA-Public Use
  Company Number: US-JNJFOC-20111008097

PATIENT
  Sex: Male
  Weight: 106.6 kg

DRUGS (14)
  1. FLOMAX [Concomitant]
     Indication: CYSTITIS
     Route: 065
  2. AVODART [Concomitant]
     Route: 065
  3. BETA BLOCKERS, NOS [Concomitant]
     Route: 065
  4. VESICARE [Concomitant]
     Indication: CYSTITIS
     Route: 065
  5. NEURONTIN [Concomitant]
     Route: 065
  6. ZYTIGA [Suspect]
     Indication: PROSTATE CANCER
     Route: 048
     Dates: start: 20111013, end: 20111201
  7. CELEBREX [Concomitant]
     Route: 065
  8. PROVIGIL [Concomitant]
     Route: 065
  9. CHLOROTHIAZIDE [Concomitant]
     Route: 065
  10. ARICEPT [Concomitant]
     Route: 065
  11. HYDROCHLOROTHIAZIDE [Concomitant]
     Route: 065
  12. ZYTIGA [Suspect]
     Route: 048
     Dates: start: 20120101
  13. PREDNISONE TAB [Concomitant]
     Route: 065
     Dates: start: 20111017
  14. LASIX [Concomitant]
     Route: 065

REACTIONS (1)
  - FATIGUE [None]
